FAERS Safety Report 8901125 (Version 2)
Quarter: 2013Q1

REPORT INFORMATION
  Report Type: Spontaneous
  Country: DE (occurrence: DE)
  Receive Date: 20121108
  Receipt Date: 20130131
  Transmission Date: 20140127
  Serious: Yes (Life-Threatening, Hospitalization)
  Sender: FDA-Public Use
  Company Number: DE-B.I. PHARMACEUTICALS,INC./RIDGEFIELD-2012-DE-02648DE

PATIENT
  Age: 65 Year
  Sex: Male
  Weight: 96 kg

DRUGS (8)
  1. PRADAXA [Suspect]
     Indication: ATRIAL FIBRILLATION
     Dosage: 220 MG
     Route: 048
     Dates: start: 20111115
  2. PRADAXA [Suspect]
     Indication: CEREBROVASCULAR ACCIDENT
  3. PANTOZOL [Concomitant]
     Indication: GASTRITIS PROPHYLAXIS
     Dosage: 40 MG
     Route: 048
     Dates: start: 20111115
  4. SIMVASTATIN [Concomitant]
     Indication: CEREBROVASCULAR ACCIDENT PROPHYLAXIS
     Dosage: 40 MG
     Route: 048
     Dates: start: 20111115
  5. BELOC ZOK [Concomitant]
     Indication: HEART RATE ABNORMAL
     Dosage: 95 MG
     Route: 048
  6. BELOC ZOK [Concomitant]
     Indication: HYPERTENSION
  7. DIOVAN [Concomitant]
     Indication: HYPERTENSION
     Dosage: 80 MG
     Route: 048
  8. DEKRISTOL [Concomitant]
     Dosage: 2857.1429 NR
     Route: 048
     Dates: start: 20111125

REACTIONS (1)
  - Ischaemic stroke [Recovered/Resolved with Sequelae]
